FAERS Safety Report 8834520 (Version 1)
Quarter: 2012Q4

REPORT INFORMATION
  Report Type: 
  Country: US (occurrence: US)
  Receive Date: 20121010
  Receipt Date: 20121010
  Transmission Date: 20130627
  Serious: No
  Sender: FDA-Public Use
  Company Number: US-PFIZER INC-2012251090

PATIENT
  Age: 41 Year
  Sex: Female
  Weight: 95.24 kg

DRUGS (4)
  1. PRISTIQ [Suspect]
     Indication: DEPRESSION
     Dosage: 50 mg, 1x/day
     Route: 048
     Dates: start: 2010, end: 2011
  2. PRISTIQ [Suspect]
     Indication: ANXIETY
     Dosage: 50 mg, every other day
     Route: 048
     Dates: start: 2011, end: 2011
  3. PRISTIQ [Suspect]
     Dosage: 50 mg, every third day
     Route: 048
     Dates: start: 2011
  4. ZYRTEC [Concomitant]
     Indication: HYPERSENSITIVITY
     Dosage: UNK

REACTIONS (6)
  - Hypertension [Not Recovered/Not Resolved]
  - Feeling hot [Recovered/Resolved]
  - Night sweats [Recovered/Resolved]
  - Sexual dysfunction [Recovered/Resolved]
  - Drug ineffective [Unknown]
  - Emotional disorder [Unknown]
